FAERS Safety Report 13559270 (Version 2)
Quarter: 2017Q2

REPORT INFORMATION
  Report Type: Spontaneous
  Country: DE (occurrence: DE)
  Receive Date: 20170518
  Receipt Date: 20170525
  Transmission Date: 20170830
  Serious: Yes (Hospitalization)
  Sender: FDA-Public Use
  Company Number: DE-JNJFOC-20170507583

PATIENT
  Age: 53 Year
  Sex: Male

DRUGS (5)
  1. DIAZEPAM. [Concomitant]
     Active Substance: DIAZEPAM
     Indication: MANIA
     Dosage: 4 X 10 MG
     Route: 048
     Dates: start: 20160320, end: 20160323
  2. RISPERDAL [Suspect]
     Active Substance: RISPERIDONE
     Indication: BIPOLAR DISORDER
     Dosage: 2 X 3 MG
     Route: 048
     Dates: start: 20060101, end: 20160323
  3. FLURAZEPAM [Concomitant]
     Active Substance: FLURAZEPAM\FLURAZEPAM HYDROCHLORIDE
     Indication: MANIA
     Route: 048
     Dates: start: 20160319, end: 20160323
  4. LITHIUM CARBONATE. [Concomitant]
     Active Substance: LITHIUM CARBONATE
     Indication: BIPOLAR DISORDER
     Dosage: 2 X 450 MG
     Route: 048
     Dates: start: 20060101, end: 20160323
  5. PROMETHAZINE [Concomitant]
     Active Substance: PROMETHAZINE\PROMETHAZINE HYDROCHLORIDE
     Indication: MANIA
     Dosage: 4 X 25 MG
     Route: 048
     Dates: start: 20160320, end: 20160323

REACTIONS (8)
  - Pneumonia [Unknown]
  - Treatment noncompliance [Unknown]
  - Neuroleptic malignant syndrome [Recovered/Resolved]
  - Mania [Recovering/Resolving]
  - Polyneuropathy [Recovering/Resolving]
  - Renal failure [Unknown]
  - Electrocardiogram QT prolonged [Unknown]
  - Dysphagia [Recovering/Resolving]

NARRATIVE: CASE EVENT DATE: 20160315
